FAERS Safety Report 23191665 (Version 2)
Quarter: 2024Q3

REPORT INFORMATION
  Report Type: Report from Study
  Country: DE (occurrence: DE)
  Receive Date: 20231116
  Receipt Date: 20240702
  Transmission Date: 20241017
  Serious: Yes (Other)
  Sender: NOVARTIS
  Company Number: DE-002147023-NVSC2022DE281139

PATIENT
  Sex: Male
  Weight: 105 kg

DRUGS (1)
  1. COSENTYX [Suspect]
     Active Substance: SECUKINUMAB
     Indication: Psoriasis
     Dosage: 300 MG, Q4W (4 WEEKS ON 1D/WK)
     Route: 058
     Dates: start: 20210223

REACTIONS (1)
  - Paternal exposure during pregnancy [Unknown]

NARRATIVE: CASE EVENT DATE: 20220825
